FAERS Safety Report 5859427-3 (Version None)
Quarter: 2008Q3

REPORT INFORMATION
  Report Type: 
  Country: None (occurrence: None)
  Receive Date: 20080826
  Receipt Date: 20080826
  Transmission Date: 20090109
  Serious: Yes (Hospitalization)
  Sender: FDA-Public Use
  Company Number: None

PATIENT
  Age: 64 Year
  Sex: Female
  Weight: 61 kg

DRUGS (17)
  1. SIMVASTATIN [Suspect]
     Indication: HYPERCHOLESTEROLAEMIA
     Dosage: 20 MG QD PO
     Route: 048
     Dates: start: 20080716, end: 20080822
  2. ALBUTEROL [Concomitant]
  3. ATROVENT [Concomitant]
  4. CELEXA [Concomitant]
  5. CARDIZEM [Concomitant]
  6. CARDURA [Concomitant]
  7. DIFLUCAN [Concomitant]
  8. NEURONTIN [Concomitant]
  9. SYNTHROID [Concomitant]
  10. FLAGYL [Concomitant]
  11. PRILOSEC [Concomitant]
  12. PREDNISONE TAB [Concomitant]
  13. GEODON [Concomitant]
  14. LORTAB [Concomitant]
  15. ZOCOR [Concomitant]
  16. LASIX [Concomitant]
  17. LIMITROL [Concomitant]

REACTIONS (8)
  - ACUTE PRERENAL FAILURE [None]
  - ASTHENIA [None]
  - BLOOD CREATININE INCREASED [None]
  - COLITIS ISCHAEMIC [None]
  - HAEMOPTYSIS [None]
  - PAIN [None]
  - RENAL FAILURE ACUTE [None]
  - RHABDOMYOLYSIS [None]
